FAERS Safety Report 18598753 (Version 2)
Quarter: 2024Q2

REPORT INFORMATION
  Report Type: Other
  Country: US (occurrence: None)
  Receive Date: 20201210
  Receipt Date: 20240524
  Transmission Date: 20240716
  Serious: Yes (Other)
  Sender: FDA-Public Use
  Company Number: US-ROCHE-2724902

PATIENT

DRUGS (1)
  1. TOCILIZUMAB [Suspect]
     Active Substance: TOCILIZUMAB
     Indication: COVID-19
     Route: 042

REACTIONS (5)
  - Pneumonia [Unknown]
  - Haematological infection [Unknown]
  - Infection [Unknown]
  - Urinary tract infection [Unknown]
  - Off label use [Unknown]
